FAERS Safety Report 7270844-X (Version None)
Quarter: 2011Q1

REPORT INFORMATION
  Report Type: 
  Country: None (occurrence: None)
  Receive Date: 20110125
  Receipt Date: 20110125
  Transmission Date: 20110831
  Serious: Yes (Life-Threatening, Other)
  Sender: FDA-Public Use
  Company Number: None

PATIENT
  Age: 35 Year
  Sex: Female
  Weight: 58.9676 kg

DRUGS (1)
  1. EFFEXOR XR [Suspect]
     Indication: DEPRESSION
     Dosage: 1 PILL 1 TIME A DAY PO
     Route: 048
     Dates: start: 20080401, end: 20110121

REACTIONS (17)
  - FEELING ABNORMAL [None]
  - HEADACHE [None]
  - SUICIDAL IDEATION [None]
  - ANGER [None]
  - UTERINE LEIOMYOMA [None]
  - WITHDRAWAL SYNDROME [None]
  - NICOTINE DEPENDENCE [None]
  - ALOPECIA [None]
  - RESTLESSNESS [None]
  - LOSS OF LIBIDO [None]
  - DEPRESSION [None]
  - BONE PAIN [None]
  - AMNESIA [None]
  - WEIGHT DECREASED [None]
  - PAIN [None]
  - CONDITION AGGRAVATED [None]
  - MIDDLE INSOMNIA [None]
